FAERS Safety Report 14963654 (Version 2)
Quarter: 2018Q3

REPORT INFORMATION
  Report Type: Spontaneous
  Country: US (occurrence: US)
  Receive Date: 20180601
  Receipt Date: 20180829
  Transmission Date: 20181010
  Serious: Yes (Hospitalization)
  Sender: FDA-Public Use
  Company Number: US-JNJFOC-20180538974

PATIENT
  Age: 56 Year
  Sex: Male
  Weight: 93.9 kg

DRUGS (1)
  1. INVOKANA [Suspect]
     Active Substance: CANAGLIFLOZIN
     Indication: TYPE 2 DIABETES MELLITUS
     Route: 048
     Dates: start: 20141123

REACTIONS (4)
  - Gangrene [Unknown]
  - Diabetic foot [Unknown]
  - Acute kidney injury [Unknown]
  - Foot amputation [Unknown]

NARRATIVE: CASE EVENT DATE: 20150318
